FAERS Safety Report 7518158-4 (Version None)
Quarter: 2011Q2

REPORT INFORMATION
  Report Type: 
  Country: None (occurrence: None)
  Receive Date: 20110602
  Receipt Date: 20110530
  Transmission Date: 20111010
  Serious: Yes (Life-Threatening, Hospitalization)
  Sender: FDA-Public Use
  Company Number: DE-TEVA-283853ISR

PATIENT
  Age: 72 Year
  Sex: Male
  Weight: 60 kg

DRUGS (25)
  1. DEXAMETHASONE [Suspect]
     Dates: start: 20110513
  2. CANDESARTAN CILEXETIL [Concomitant]
     Indication: HYPERTENSION
     Dosage: 8 MILLIGRAM;
     Route: 048
  3. POLYETHYLENE GLYCOL [Concomitant]
     Indication: CONSTIPATION PROPHYLAXIS
     Dosage: 13.125 GRAM;
     Route: 048
  4. LINOLEIC ACID [Concomitant]
     Indication: ERYTHEMA
     Dates: start: 20101103
  5. RED BLOOD CELLS [Concomitant]
     Indication: ANAEMIA
     Dates: start: 20101224, end: 20101224
  6. ACYCLOVIR [Concomitant]
     Indication: ANTIVIRAL PROPHYLAXIS
     Dosage: 1800 MILLIGRAM;
     Route: 048
     Dates: start: 20100706
  7. HYDROMORPHONE HCL [Concomitant]
     Indication: BONE PAIN
     Dosage: 256 MILLIGRAM;
     Route: 048
     Dates: start: 20100526
  8. PREGABALIN [Concomitant]
     Indication: NEURALGIA
     Dosage: 600 MILLIGRAM;
     Route: 048
     Dates: start: 20100526
  9. TORSEMIDE [Concomitant]
     Indication: OEDEMA
     Route: 048
     Dates: start: 20100825
  10. FRESUBIN [Concomitant]
     Indication: DECREASED APPETITE
     Route: 048
     Dates: start: 20100525
  11. AMPHOTERICIN B [Concomitant]
     Indication: ANTIFUNGAL PROPHYLAXIS
     Route: 048
     Dates: start: 20100802
  12. DEXAMETHASONE [Suspect]
     Indication: MULTIPLE MYELOMA
     Dates: start: 20100429
  13. DEXAMETHASONE [Suspect]
     Dates: end: 20101223
  14. ENOXAPARIN [Concomitant]
     Indication: THROMBOSIS PROPHYLAXIS
     Dosage: 40 MILLIGRAM;
     Route: 058
     Dates: start: 20100506
  15. ACETAMINOPHEN [Concomitant]
     Indication: BONE PAIN
     Route: 048
     Dates: start: 20100922
  16. DEXAMETHASONE [Suspect]
     Dates: start: 20101125, end: 20101216
  17. LENALIDOMIDE [Suspect]
     Indication: MULTIPLE MYELOMA
     Dosage: 25 MILLIGRAM;
     Route: 048
     Dates: start: 20100429
  18. LACTULOSE [Concomitant]
     Indication: CONSTIPATION PROPHYLAXIS
     Dosage: 10 ML;
     Route: 048
  19. RED BLOOD CELLS [Concomitant]
     Dates: start: 20110125, end: 20110125
  20. CALCIUM CARBONATE [Concomitant]
     Indication: OSTEOPOROSIS
     Dosage: 2400 MILLIGRAM;
     Route: 048
  21. ZOLEDRONIC ACID [Concomitant]
     Indication: OSTEOPOROSIS
     Dates: start: 20100408
  22. HYDROMORPHONE HCL [Concomitant]
     Dosage: 256 MILLIGRAM;
     Route: 048
     Dates: start: 20100408
  23. RED BLOOD CELLS [Concomitant]
     Dates: start: 20101226, end: 20101226
  24. RED BLOOD CELLS [Concomitant]
     Dates: start: 20110101, end: 20110101
  25. RED BLOOD CELLS [Concomitant]
     Dates: start: 20110109, end: 20110109

REACTIONS (1)
  - RECTAL PERFORATION [None]
